FAERS Safety Report 24919505 (Version 1)
Quarter: 2025Q1

REPORT INFORMATION
  Report Type: Report from Study
  Country: US (occurrence: US)
  Receive Date: 20250204
  Receipt Date: 20250204
  Transmission Date: 20250408
  Serious: No
  Sender: EXELIXIS
  Company Number: US-EXELIXIS-CABO-23071447

PATIENT
  Sex: Female

DRUGS (1)
  1. CABOMETYX [Suspect]
     Active Substance: CABOZANTINIB S-MALATE
     Indication: Renal cancer
     Dosage: 40 MG, QD
     Route: 048

REACTIONS (9)
  - Abdominal discomfort [Unknown]
  - Epistaxis [Unknown]
  - Retching [Recovering/Resolving]
  - Dehydration [Unknown]
  - Stomatitis [Unknown]
  - Constipation [Unknown]
  - Dyspepsia [Unknown]
  - Gait disturbance [Unknown]
  - Back pain [Unknown]
